FAERS Safety Report 12504394 (Version 2)
Quarter: 2016Q3

REPORT INFORMATION
  Report Type: Spontaneous
  Country: DE (occurrence: DE)
  Receive Date: 20160628
  Receipt Date: 20160907
  Transmission Date: 20161109
  Serious: Yes (Other)
  Sender: FDA-Public Use
  Company Number: DE-SA-2016SA080905

PATIENT
  Age: 30 Year
  Sex: Female

DRUGS (2)
  1. VENLAFAXINE [Concomitant]
     Active Substance: VENLAFAXINE HYDROCHLORIDE
     Indication: FATIGUE
     Dosage: SLOW RELEASING TABS
     Route: 048
     Dates: start: 20160301
  2. LEMTRADA [Suspect]
     Active Substance: ALEMTUZUMAB
     Indication: MULTIPLE SCLEROSIS
     Route: 041
     Dates: start: 20160418, end: 20160422

REACTIONS (10)
  - Burning sensation [Recovered/Resolved]
  - Muscle spasms [Unknown]
  - Emotional distress [Unknown]
  - Vertebral artery dissection [Recovered/Resolved]
  - Bradycardia [Recovered/Resolved]
  - Chills [Unknown]
  - Tremor [Unknown]
  - Crying [Unknown]
  - Cytokine storm [Recovered/Resolved]
  - Headache [Recovered/Resolved]

NARRATIVE: CASE EVENT DATE: 2016
